FAERS Safety Report 11021801 (Version 1)
Quarter: 2015Q2

REPORT INFORMATION
  Report Type: Spontaneous
  Country: US (occurrence: US)
  Receive Date: 20150413
  Receipt Date: 20150413
  Transmission Date: 20150821
  Serious: Yes (Other)
  Sender: FDA-Public Use
  Company Number: US-PFIZER INC-2015121070

PATIENT

DRUGS (6)
  1. TRAZODONE [Suspect]
     Active Substance: TRAZODONE HYDROCHLORIDE
     Dosage: 150 MG, UNK
  2. KEPPRA [Suspect]
     Active Substance: LEVETIRACETAM
     Dosage: 3000 MG, UNK
  3. ATIVAN [Suspect]
     Active Substance: LORAZEPAM
     Dosage: 6 MG, UNK
  4. DILANTIN [Suspect]
     Active Substance: PHENYTOIN
     Dosage: 600 MG, UNK
  5. TRAMADOL [Suspect]
     Active Substance: TRAMADOL
     Dosage: 500 MG, UNK
  6. METHOCARBAMOL. [Suspect]
     Active Substance: METHOCARBAMOL
     Dosage: 2250 MG, UNK

REACTIONS (2)
  - Petit mal epilepsy [Unknown]
  - Myocardial infarction [Unknown]
